FAERS Safety Report 18117000 (Version 1)
Quarter: 2020Q3

REPORT INFORMATION
  Report Type: Spontaneous
  Country: KR (occurrence: KR)
  Receive Date: 20200805
  Receipt Date: 20200805
  Transmission Date: 20201103
  Serious: Yes (Hospitalization)
  Sender: FDA-Public Use
  Company Number: KR-UNICHEM PHARMACEUTICALS (USA) INC-UCM202007-000847

PATIENT
  Age: 32 Year
  Sex: Female

DRUGS (3)
  1. DIVALPROEX SODIUM. [Suspect]
     Active Substance: DIVALPROEX SODIUM
     Indication: STATUS EPILEPTICUS
     Dosage: 30 MG PER KG BOLUS
     Route: 042
  2. LAMOTRIGINE. [Suspect]
     Active Substance: LAMOTRIGINE
     Indication: TEMPORAL LOBE EPILEPSY
  3. DIVALPROEX SODIUM. [Suspect]
     Active Substance: DIVALPROEX SODIUM
     Route: 048

REACTIONS (8)
  - Partial seizures [Recovered/Resolved]
  - Toxicity to various agents [Unknown]
  - Drug interaction [Unknown]
  - Dizziness [Recovered/Resolved]
  - Nausea [Unknown]
  - Nystagmus [Recovered/Resolved]
  - Vision blurred [Unknown]
  - Ataxia [Unknown]
